FAERS Safety Report 11345357 (Version 1)
Quarter: 2015Q3

REPORT INFORMATION
  Report Type: Spontaneous
  Country: US (occurrence: None)
  Receive Date: 20150805
  Receipt Date: 20150805
  Transmission Date: 20151125
  Serious: Yes (Other)
  Sender: FDA-Public Use
  Company Number: None

PATIENT
  Age: 68 Year
  Sex: Female

DRUGS (1)
  1. IBRANCE [Suspect]
     Active Substance: PALBOCICLIB
     Indication: BREAST CANCER FEMALE
     Dosage: 1 QD FOR 21 DAYS
     Route: 048
     Dates: start: 20150612, end: 20150804

REACTIONS (2)
  - Eye haemorrhage [None]
  - Drug dose omission [None]

NARRATIVE: CASE EVENT DATE: 20150804
